FAERS Safety Report 16761226 (Version 1)
Quarter: 2019Q3

REPORT INFORMATION
  Report Type: Spontaneous
  Country: US (occurrence: US)
  Receive Date: 20190830
  Receipt Date: 20190830
  Transmission Date: 20191005
  Serious: No
  Sender: FDA-Public Use
  Company Number: US-ANIPHARMA-2019-US-010001

PATIENT
  Age: 57 Year
  Sex: Female
  Weight: 99.79 kg

DRUGS (17)
  1. TAMOXIFEN [Suspect]
     Active Substance: TAMOXIFEN
     Route: 048
  2. VITAMIN B12 [Concomitant]
     Active Substance: CYANOCOBALAMIN
  3. ARIMIDEX [Suspect]
     Active Substance: ANASTROZOLE
     Indication: BREAST CANCER FEMALE
     Dosage: UNK PO DAILY
     Route: 048
     Dates: start: 200806, end: 200812
  4. TAXOL [Suspect]
     Active Substance: PACLITAXEL
  5. LETROZOLE. [Suspect]
     Active Substance: LETROZOLE
  6. COQ10 [Concomitant]
     Active Substance: UBIDECARENONE
     Dosage: 200 MILLIGRAMS TWO TIMES A DAY
     Route: 048
  7. BRILINTA [Suspect]
     Active Substance: TICAGRELOR
     Dosage: UNKNOWN
     Route: 048
     Dates: start: 201809, end: 201810
  8. PLAVIX [Suspect]
     Active Substance: CLOPIDOGREL BISULFATE
  9. LIDOCAINE PATCHES [Concomitant]
     Active Substance: LIDOCAINE
     Route: 061
  10. VITAMIN D [Concomitant]
     Active Substance: VITAMIN D NOS
     Dosage: 5000 INTERNATIONAL UNITS EVERY MORNING
     Route: 048
  11. CENTRUM SILVER [Concomitant]
     Active Substance: MINERALS\VITAMINS
  12. HYDROCHLOROTHIAZIDE. [Concomitant]
     Active Substance: HYDROCHLOROTHIAZIDE
     Route: 048
  13. LIPITOR [Suspect]
     Active Substance: ATORVASTATIN CALCIUM
  14. HERCEPTIN [Suspect]
     Active Substance: TRASTUZUMAB
  15. MAGNESIUM [Concomitant]
     Active Substance: MAGNESIUM
  16. METOPROLOL SUCCINATE. [Suspect]
     Active Substance: METOPROLOL SUCCINATE
     Dosage: 50 MILLIGRAMS AT NIGHT
     Route: 048
     Dates: start: 201809
  17. ROSUVASTATIN CALCIUM. [Suspect]
     Active Substance: ROSUVASTATIN CALCIUM
     Dosage: 40 MILLIGRAMS AT NIGHT
     Route: 048
     Dates: start: 201811

REACTIONS (5)
  - Pain in extremity [Not Recovered/Not Resolved]
  - Arthralgia [Not Recovered/Not Resolved]
  - Muscle spasms [Not Recovered/Not Resolved]
  - Hot flush [Not Recovered/Not Resolved]
  - Alopecia [Unknown]

NARRATIVE: CASE EVENT DATE: 200806
